FAERS Safety Report 4442854-9 (Version None)
Quarter: 2004Q3

REPORT INFORMATION
  Report Type: 
  Country: None (occurrence: None)
  Receive Date: 20040903
  Receipt Date: 20040521
  Transmission Date: 20050211
  Serious: Yes (Other)
  Sender: FDA-Public Use
  Company Number: 2004UW10759

PATIENT
  Age: 41 Year
  Sex: Female
  Weight: 62.1428 kg

DRUGS (4)
  1. CRESTOR [Suspect]
     Indication: BLOOD CHOLESTEROL INCREASED
     Dosage: 10 MG PO
     Route: 048
     Dates: start: 20040501
  2. MULTIVITAMIN ^LAPPE^ [Concomitant]
  3. BIRTH CONTROL PILLS [Concomitant]
  4. ANTIBIOTICS [Concomitant]

REACTIONS (2)
  - ABDOMINAL DISTENSION [None]
  - HEADACHE [None]
